FAERS Safety Report 13713171 (Version 1)
Quarter: 2017Q3

REPORT INFORMATION
  Report Type: Spontaneous
  Country: IN (occurrence: IN)
  Receive Date: 20170704
  Receipt Date: 20170704
  Transmission Date: 20171127
  Serious: Yes (Other)
  Sender: FDA-Public Use
  Company Number: IN-ROCHE-1955077

PATIENT

DRUGS (1)
  1. AVASTIN [Suspect]
     Active Substance: BEVACIZUMAB
     Indication: AGE-RELATED MACULAR DEGENERATION
     Route: 065

REACTIONS (6)
  - Off label use [Unknown]
  - Blindness [Unknown]
  - Product contamination [Unknown]
  - Vision blurred [Unknown]
  - Dyspnoea [Unknown]
  - Erythema [Unknown]
